FAERS Safety Report 15689267 (Version 2)
Quarter: 2019Q1

REPORT INFORMATION
  Report Type: Report from Study
  Country: MX (occurrence: MX)
  Receive Date: 20181205
  Receipt Date: 20190102
  Transmission Date: 20190417
  Serious: Yes (Other)
  Sender: FDA-Public Use
  Company Number: PHHY2018MX171545

PATIENT
  Age: 14 Year
  Sex: Male

DRUGS (7)
  1. RITALINE [Suspect]
     Active Substance: METHYLPHENIDATE HYDROCHLORIDE
     Indication: ATTENTION DEFICIT/HYPERACTIVITY DISORDER
  2. TRILEPTAL [Suspect]
     Active Substance: OXCARBAZEPINE
     Indication: INTELLECTUAL DISABILITY
     Dosage: 1 DF (300 MG ), QD
     Route: 048
  3. RITALINE [Suspect]
     Active Substance: METHYLPHENIDATE HYDROCHLORIDE
     Indication: INTELLECTUAL DISABILITY
     Dosage: 1 DF (10 MG), QD
     Route: 048
  4. CARBAMAZEPINE. [Concomitant]
     Active Substance: CARBAMAZEPINE
     Indication: INTELLECTUAL DISABILITY
     Dosage: 1 DF, QD
     Route: 048
  5. CARBAMAZEPINE. [Concomitant]
     Active Substance: CARBAMAZEPINE
     Indication: ATTENTION DEFICIT/HYPERACTIVITY DISORDER
  6. OXCARBAZEPINE. [Concomitant]
     Active Substance: OXCARBAZEPINE
     Indication: ATTENTION DEFICIT/HYPERACTIVITY DISORDER
  7. OXCARBAZEPINE. [Concomitant]
     Active Substance: OXCARBAZEPINE
     Indication: INTELLECTUAL DISABILITY
     Dosage: 1 DF, QD
     Route: 048

REACTIONS (10)
  - Aggression [Recovered/Resolved]
  - Incorrect dose administered [Unknown]
  - Abdominal infection [Unknown]
  - Intentional self-injury [Recovered/Resolved]
  - Pyrexia [Recovered/Resolved]
  - Anxiety [Unknown]
  - Electroencephalogram abnormal [Unknown]
  - Impulsive behaviour [Recovered/Resolved]
  - Diarrhoea [Recovered/Resolved]
  - Product use in unapproved indication [Unknown]

NARRATIVE: CASE EVENT DATE: 201810
